FAERS Safety Report 16744623 (Version 2)
Quarter: 2019Q4

REPORT INFORMATION
  Report Type: Spontaneous
  Country: CA (occurrence: CA)
  Receive Date: 20190827
  Receipt Date: 20191113
  Transmission Date: 20200122
  Serious: Yes (Hospitalization, Other)
  Sender: FDA-Public Use
  Company Number: CA-PFIZER INC-2019363377

PATIENT
  Age: 78 Year
  Sex: Female

DRUGS (1)
  1. BOSULIF [Suspect]
     Active Substance: BOSUTINIB MONOHYDRATE
     Indication: CHRONIC MYELOID LEUKAEMIA
     Dosage: 400 MG, 1X/DAY
     Route: 048
     Dates: start: 20190722, end: 201908

REACTIONS (3)
  - Magnesium deficiency [Unknown]
  - Hypokalaemia [Unknown]
  - Renal failure [Unknown]
